FAERS Safety Report 9669683 (Version 1)
Quarter: 2013Q4

REPORT INFORMATION
  Report Type: Spontaneous
  Country: DE (occurrence: DE)
  Receive Date: 20131105
  Receipt Date: 20131105
  Transmission Date: 20140711
  Serious: Yes (Hospitalization)
  Sender: FDA-Public Use
  Company Number: DE-FOUGERA-2013FO000335

PATIENT
  Age: 60 Year
  Sex: Male

DRUGS (1)
  1. SOLARAZE [Suspect]
     Indication: ACTINIC KERATOSIS
     Route: 061

REACTIONS (3)
  - Retinal detachment [Not Recovered/Not Resolved]
  - Vitreous degeneration [Not Recovered/Not Resolved]
  - Rash vesicular [Recovered/Resolved]
